FAERS Safety Report 4688160-9 (Version None)
Quarter: 2005Q2

REPORT INFORMATION
  Report Type: 
  Country: None (occurrence: None)
  Receive Date: 20050610
  Receipt Date: 20050510
  Transmission Date: 20051028
  Serious: Yes (Hospitalization)
  Sender: FDA-Public Use
  Company Number: PHFR2005GB01765

PATIENT
  Age: 62 Year
  Sex: Male
  Weight: 98 kg

DRUGS (5)
  1. ZOMETA [Suspect]
     Indication: MULTIPLE MYELOMA
     Dosage: UNK, UNK
  2. CYCLOPHOSPHAMIDE [Concomitant]
     Dosage: 500 MG/DAY
     Route: 048
     Dates: start: 20050506
  3. VINCRISTINE [Concomitant]
     Dosage: 0.4 MG/DAY
     Route: 042
     Dates: start: 20050506, end: 20050509
  4. ADRIAMYCIN PFS [Concomitant]
     Dosage: 20 MG/DAY
     Route: 042
     Dates: start: 20050506, end: 20050509
  5. DEXAMETHASONE [Concomitant]
     Dosage: 40 MG/DAY
     Route: 048
     Dates: start: 20050507, end: 20050510

REACTIONS (2)
  - CHEST PAIN [None]
  - DYSPNOEA EXERTIONAL [None]
